FAERS Safety Report 8450047 (Version 3)
Quarter: 2016Q1

REPORT INFORMATION
  Report Type: Spontaneous
  Country: US (occurrence: US)
  Receive Date: 20120309
  Receipt Date: 20160202
  Transmission Date: 20160526
  Serious: Yes (Hospitalization, Other)
  Sender: FDA-Public Use
  Company Number: US-BAYER-2012-021916

PATIENT
  Age: 42 Year
  Sex: Female
  Weight: 54.42 kg

DRUGS (9)
  1. DEXAMETHASONE W/TOBRAMYCIN [Concomitant]
     Indication: EYE INFECTION VIRAL
     Route: 047
  2. PEPTO DIARRHEA CONTROL [Concomitant]
  3. FLONASE [Concomitant]
     Active Substance: FLUTICASONE PROPIONATE
     Indication: MULTIPLE ALLERGIES
     Dosage: 50 ?G,
     Route: 045
     Dates: start: 2002
  4. FAMOTIDIN [Concomitant]
     Dosage: 20 MG, DAILY
  5. PHENERGAN [Concomitant]
     Active Substance: PROMETHAZINE HYDROCHLORIDE
     Indication: NAUSEA
  6. PEPCID [Concomitant]
     Active Substance: FAMOTIDINE
  7. PHENERGAN [Concomitant]
     Active Substance: PROMETHAZINE HYDROCHLORIDE
     Indication: VOMITING
  8. IBUPROFEN. [Concomitant]
     Active Substance: IBUPROFEN
     Indication: EYE INFECTION VIRAL
  9. YAZ [Suspect]
     Active Substance: DROSPIRENONE\ETHINYL ESTRADIOL
     Indication: CONTRACEPTION
     Dosage: UNK
     Dates: start: 200810, end: 200910

REACTIONS (12)
  - Colitis ischaemic [None]
  - Embolism venous [None]
  - Rectal haemorrhage [None]
  - Fear [None]
  - Thrombosis [None]
  - Intestinal ischaemia [None]
  - Abdominal pain [None]
  - Diarrhoea [None]
  - Anxiety [None]
  - Anhedonia [None]
  - Pain [None]
  - Psychological trauma [None]

NARRATIVE: CASE EVENT DATE: 200910
